FAERS Safety Report 5622411-9 (Version None)
Quarter: 2008Q1

REPORT INFORMATION
  Report Type: 
  Country: None (occurrence: None)
  Receive Date: 20080211
  Receipt Date: 20080130
  Transmission Date: 20080703
  Serious: Yes (Other)
  Sender: FDA-Public Use
  Company Number: NO-PFIZER INC-2008006270

PATIENT
  Age: 75 Year
  Sex: Male

DRUGS (4)
  1. DETRUSITOL SR [Suspect]
     Indication: URGE INCONTINENCE
     Route: 048
     Dates: start: 20080101, end: 20080101
  2. SERETIDE [Concomitant]
     Indication: ASTHMA
     Dosage: TEXT:50/500
     Route: 055
  3. SERETIDE [Concomitant]
     Indication: CHRONIC OBSTRUCTIVE PULMONARY DISEASE
  4. COZAAR [Concomitant]
     Indication: HYPERTENSION
     Route: 048

REACTIONS (2)
  - FATIGUE [None]
  - MUSCULAR WEAKNESS [None]
